FAERS Safety Report 4478122-9 (Version None)
Quarter: 2004Q4

REPORT INFORMATION
  Report Type: 
  Country: None (occurrence: None)
  Receive Date: 20041018
  Receipt Date: 20041018
  Transmission Date: 20050328
  Serious: Yes (Death, Life-Threatening)
  Sender: FDA-Public Use
  Company Number: None

PATIENT
  Age: 15 Year
  Sex: Female
  Weight: 43 kg

DRUGS (1)
  1. L-ASPARAGINASE [Suspect]
     Indication: ACUTE LYMPHOCYTIC LEUKAEMIA
     Dosage: 13,800 U IM X6 DOSES
     Route: 030
     Dates: start: 20040812, end: 20040830

REACTIONS (5)
  - BRONCHOPULMONARY ASPERGILLOSIS [None]
  - EMBOLIC CEREBRAL INFARCTION [None]
  - MUCORMYCOSIS [None]
  - NERVOUS SYSTEM DISORDER [None]
  - SEPTIC EMBOLUS [None]
